FAERS Safety Report 9164564 (Version 4)
Quarter: 2013Q1

REPORT INFORMATION
  Report Type: Spontaneous
  Country: GB (occurrence: None)
  Receive Date: 20130226
  Receipt Date: 20130328
  Transmission Date: 20140127
  Serious: Yes (Other)
  Sender: FDA-Public Use
  Company Number: AUR-APL-2013-01491

PATIENT
  Sex: Male

DRUGS (1)
  1. CITALOPRAM (CITALOPRAM) [Suspect]
     Indication: PRODUCT USED FOR UNKNOWN INDICATION

REACTIONS (7)
  - Anxiety [None]
  - Fatigue [None]
  - Irritability [None]
  - Food craving [None]
  - Myalgia [None]
  - Blood glucose decreased [None]
  - Post viral fatigue syndrome [None]
